FAERS Safety Report 7748426-2 (Version None)
Quarter: 2011Q3

REPORT INFORMATION
  Report Type: 
  Country: None (occurrence: None)
  Receive Date: 20110914
  Receipt Date: 20110906
  Transmission Date: 20111222
  Serious: Yes (Hospitalization)
  Sender: FDA-Public Use
  Company Number: US-BIOGENIDEC-2011BI004898

PATIENT
  Age: 39 Year
  Sex: Male

DRUGS (11)
  1. CENTRUM [Concomitant]
  2. CRESTOR [Concomitant]
     Route: 048
  3. BETACAROTENE [Concomitant]
  4. VITAMIN D [Concomitant]
  5. TYSABRI [Suspect]
     Indication: MULTIPLE SCLEROSIS
     Route: 042
     Dates: start: 20091015, end: 20110111
  6. FISH OIL [Concomitant]
  7. HYZAAR [Concomitant]
  8. LASIX [Concomitant]
  9. ASCORBIC ACID [Concomitant]
  10. VITAMIN E [Concomitant]
  11. LACTOBACILLUS [Concomitant]

REACTIONS (1)
  - ABSCESS JAW [None]
